FAERS Safety Report 19039896 (Version 1)
Quarter: 2021Q1

REPORT INFORMATION
  Report Type: Spontaneous
  Country: US (occurrence: US)
  Receive Date: 20210323
  Receipt Date: 20210323
  Transmission Date: 20210420
  Serious: No
  Sender: FDA-Public Use
  Company Number: US-AUROBINDO-AUR-APL-2020-030988

PATIENT
  Age: 70 Year
  Sex: Female
  Weight: 79.38 kg

DRUGS (2)
  1. CELECOXIB. [Suspect]
     Active Substance: CELECOXIB
     Indication: OSTEOARTHRITIS
     Dosage: 200 MILLIGRAM, ONCE A DAY
     Route: 048
     Dates: start: 2019
  2. CELECOXIB. [Suspect]
     Active Substance: CELECOXIB
     Dosage: 200 MILLIGRAM, TWO TIMES A DAY (DOSE INCREASED)
     Route: 048

REACTIONS (2)
  - Gait disturbance [Unknown]
  - Burning sensation [Not Recovered/Not Resolved]

NARRATIVE: CASE EVENT DATE: 202006
